FAERS Safety Report 7985334-6 (Version None)
Quarter: 2011Q4

REPORT INFORMATION
  Report Type: 
  Country: None (occurrence: None)
  Receive Date: 20111216
  Receipt Date: 20111019
  Transmission Date: 20120403
  Serious: No
  Sender: FDA-Public Use
  Company Number: US-ABBOTT-11P-163-0867515-00

PATIENT
  Sex: Female
  Weight: 101.24 kg

DRUGS (5)
  1. WELLBUTRIN [Concomitant]
     Indication: DEPRESSION
  2. NEXIUM [Concomitant]
     Indication: GASTROOESOPHAGEAL REFLUX DISEASE
  3. SEROQUEL [Concomitant]
     Indication: ANXIETY
  4. TRILIPIX [Suspect]
     Indication: BLOOD CHOLESTEROL INCREASED
     Dates: start: 20100101
  5. LUNESTA [Concomitant]
     Indication: SLEEP DISORDER THERAPY

REACTIONS (2)
  - NAUSEA [None]
  - HYPOAESTHESIA [None]
